FAERS Safety Report 23605646 (Version 2)
Quarter: 2024Q2

REPORT INFORMATION
  Report Type: Spontaneous
  Country: US (occurrence: US)
  Receive Date: 20240307
  Receipt Date: 20240422
  Transmission Date: 20240716
  Serious: No
  Sender: FDA-Public Use
  Company Number: US-002147023-NVSC2024US048884

PATIENT

DRUGS (2)
  1. COSENTYX [Suspect]
     Active Substance: SECUKINUMAB
     Indication: Undifferentiated spondyloarthritis
     Dosage: UNK UNK, Q4W
     Route: 065
  2. SULFASALAZINE [Concomitant]
     Active Substance: SULFASALAZINE
     Indication: Product used for unknown indication
     Dosage: 2 DOSAGE FORM, BID
     Route: 065

REACTIONS (8)
  - Sacroiliitis [Unknown]
  - Bone marrow oedema [Unknown]
  - Fatigue [Unknown]
  - Back pain [Unknown]
  - Plantar fasciitis [Unknown]
  - Tendonitis [Unknown]
  - Inflammation [Unknown]
  - Nerve compression [Unknown]
